FAERS Safety Report 10650910 (Version 1)
Quarter: 2014Q4

REPORT INFORMATION
  Report Type: Spontaneous
  Country: US (occurrence: US)
  Receive Date: 20141215
  Receipt Date: 20141215
  Transmission Date: 20150529
  Serious: No
  Sender: FDA-Public Use
  Company Number: US-009507513-1412USA004683

PATIENT

DRUGS (2)
  1. SYLATRON [Suspect]
     Active Substance: PEGINTERFERON ALFA-2B
     Indication: ADJUVANT THERAPY
     Dosage: 444/1.25
     Route: 051
     Dates: start: 201406, end: 201412
  2. SYLATRON [Suspect]
     Active Substance: PEGINTERFERON ALFA-2B
     Indication: MALIGNANT MELANOMA

REACTIONS (3)
  - Injection site necrosis [Unknown]
  - Drug dose omission [Unknown]
  - Injection site necrosis [Unknown]

NARRATIVE: CASE EVENT DATE: 201411
